FAERS Safety Report 17931275 (Version 1)
Quarter: 2020Q2

REPORT INFORMATION
  Report Type: Spontaneous
  Country: DE (occurrence: DE)
  Receive Date: 20200623
  Receipt Date: 20200623
  Transmission Date: 20200714
  Serious: Yes (Hospitalization, Disabling, Other)
  Sender: FDA-Public Use
  Company Number: NVSC2020DE173299

PATIENT
  Age: 57 Year
  Sex: Male

DRUGS (2)
  1. MEKINIST [Suspect]
     Active Substance: TRAMETINIB DIMETHYL SULFOXIDE
     Indication: MALIGNANT MELANOMA STAGE III
     Dosage: 2 MG, QD (TRAMETINIB (MEKINIST) 2MG 1-0-0 F?R 1 JAHR)
     Route: 048
     Dates: start: 20200201, end: 20200225
  2. TAFINLAR [Suspect]
     Active Substance: DABRAFENIB MESYLATE
     Indication: MALIGNANT MELANOMA STAGE III
     Dosage: 150 MG, Q12H (DABRAFENIB (TAFINLAR) 75MG 2-0-2)
     Route: 048
     Dates: start: 20200201, end: 20200225

REACTIONS (1)
  - Drug-induced liver injury [Unknown]

NARRATIVE: CASE EVENT DATE: 20200225
